FAERS Safety Report 14620744 (Version 1)
Quarter: 2018Q1

REPORT INFORMATION
  Report Type: Spontaneous
  Country: GB (occurrence: GB)
  Receive Date: 20180309
  Receipt Date: 20180309
  Transmission Date: 20180509
  Serious: Yes (Other)
  Sender: FDA-Public Use
  Company Number: GB-BAUSCH-BL-2018-005934

PATIENT
  Age: 15 Year
  Sex: Male

DRUGS (7)
  1. AMOXICILLIN. [Suspect]
     Active Substance: AMOXICILLIN
     Indication: ALPHA HAEMOLYTIC STREPTOCOCCAL INFECTION
  2. AMOXICILLIN. [Suspect]
     Active Substance: AMOXICILLIN
     Indication: OSTEONECROSIS OF JAW
     Route: 065
  3. METRONIDAZOLE. [Suspect]
     Active Substance: METRONIDAZOLE
     Indication: ALPHA HAEMOLYTIC STREPTOCOCCAL INFECTION
  4. METRONIDAZOLE. [Suspect]
     Active Substance: METRONIDAZOLE
     Indication: OSTEONECROSIS OF JAW
     Route: 065
  5. METRONIDAZOLE. [Suspect]
     Active Substance: METRONIDAZOLE
     Indication: STREPTOCOCCAL INFECTION
  6. AMOXICILLIN. [Suspect]
     Active Substance: AMOXICILLIN
     Indication: STREPTOCOCCAL INFECTION
  7. DENOSUMAB [Concomitant]
     Active Substance: DENOSUMAB
     Indication: NEOPLASM RECURRENCE

REACTIONS (2)
  - Streptococcal infection [Recovered/Resolved]
  - Osteonecrosis of jaw [Recovered/Resolved]
